FAERS Safety Report 5586472-8 (Version None)
Quarter: 2008Q1

REPORT INFORMATION
  Report Type: 
  Country: None (occurrence: None)
  Receive Date: 20080108
  Receipt Date: 20080108
  Transmission Date: 20080703
  Serious: No
  Sender: FDA-Public Use
  Company Number: None

PATIENT
  Age: 56 Year
  Sex: Female
  Weight: 53.5244 kg

DRUGS (1)
  1. LEVAQUIN [Suspect]
     Indication: PSEUDOMONAS INFECTION
     Dosage: 1 TABLET ONCE DAILY PO
     Route: 048
     Dates: start: 20071213, end: 20071215

REACTIONS (11)
  - BALANCE DISORDER [None]
  - BURNING SENSATION [None]
  - GAIT DISTURBANCE [None]
  - GLOSSODYNIA [None]
  - JOINT SPRAIN [None]
  - MUSCULOSKELETAL PAIN [None]
  - PHOTOPSIA [None]
  - RASH [None]
  - TENDON INJURY [None]
  - TINNITUS [None]
  - VITREOUS LOSS [None]
